FAERS Safety Report 7961644-3 (Version None)
Quarter: 2011Q4

REPORT INFORMATION
  Report Type: 
  Country: None (occurrence: None)
  Receive Date: 20111202
  Receipt Date: 20111202
  Transmission Date: 20120403
  Serious: Yes (Other)
  Sender: FDA-Public Use
  Company Number: None

PATIENT
  Sex: Male
  Weight: 51.5 kg

DRUGS (5)
  1. VIMPAT [Concomitant]
  2. VALIUM [Concomitant]
  3. ZONEGRAN [Concomitant]
  4. KLONOPIN [Concomitant]
  5. FELBAMATE [Suspect]
     Indication: CONVULSION
     Dosage: 600MG @ 1 1/2 BID PO
     Route: 048
     Dates: start: 20111101

REACTIONS (3)
  - PRODUCT SUBSTITUTION ISSUE [None]
  - GRAND MAL CONVULSION [None]
  - CONDITION AGGRAVATED [None]
